FAERS Safety Report 18382725 (Version 1)
Quarter: 2020Q4

REPORT INFORMATION
  Report Type: Spontaneous
  Country: US (occurrence: US)
  Receive Date: 20201014
  Receipt Date: 20201014
  Transmission Date: 20210114
  Serious: No
  Sender: FDA-Public Use
  Company Number: None

PATIENT
  Age: 52 Year
  Sex: Female
  Weight: 86.4 kg

DRUGS (10)
  1. ESTER VITAMIN C [Concomitant]
  2. VITAMIN D [Concomitant]
     Active Substance: VITAMIN D NOS
  3. SINGULAIR [Concomitant]
     Active Substance: MONTELUKAST SODIUM
  4. ZINC. [Concomitant]
     Active Substance: ZINC
  5. TIROSINT [Concomitant]
     Active Substance: LEVOTHYROXINE SODIUM
  6. EMGALITY [Suspect]
     Active Substance: GALCANEZUMAB-GNLM
     Indication: MIGRAINE
     Dosage: ?          QUANTITY:1 INJECTION(S);OTHER FREQUENCY:ONCE A MONTH;OTHER ROUTE:INJECTION INTO THIGH?
     Dates: start: 20200917, end: 20200917
  7. TROKENDI XR [Concomitant]
     Active Substance: TOPIRAMATE
  8. ELDERBERRY [Concomitant]
     Active Substance: HERBALS
  9. RIZATRIPTAN. [Concomitant]
     Active Substance: RIZATRIPTAN
  10. QUERCETIN [Concomitant]
     Active Substance: QUERCETIN

REACTIONS (5)
  - Eyelid oedema [None]
  - Impaired work ability [None]
  - Swelling face [None]
  - Mouth swelling [None]
  - Hypersensitivity [None]

NARRATIVE: CASE EVENT DATE: 20201013
